FAERS Safety Report 11379421 (Version 1)
Quarter: 2015Q3

REPORT INFORMATION
  Report Type: Spontaneous
  Country: GB (occurrence: None)
  Receive Date: 20150812
  Receipt Date: 20150812
  Transmission Date: 20151125
  Serious: Yes (Other)
  Sender: FDA-Public Use
  Company Number: NL01PV15_39429

PATIENT
  Age: 68 Year
  Sex: Male
  Weight: 76.2 kg

DRUGS (4)
  1. LANSOPRAZOLE. [Concomitant]
     Active Substance: LANSOPRAZOLE
  2. ENALAPRIL MALEATE. [Concomitant]
     Active Substance: ENALAPRIL MALEATE
  3. UNKNOWN (TAMSULOSIN) UKNOWN [Suspect]
     Active Substance: TAMSULOSIN
     Indication: OSTEOARTHRITIS
  4. VOLTAROL [Concomitant]
     Active Substance: DICLOFENAC SODIUM
     Route: 048
     Dates: start: 20150714, end: 20150722

REACTIONS (2)
  - Nocturia [None]
  - Drug interaction [None]

NARRATIVE: CASE EVENT DATE: 20150715
